FAERS Safety Report 5478049-X (Version None)
Quarter: 2007Q4

REPORT INFORMATION
  Report Type: 
  Country: None (occurrence: None)
  Receive Date: 20071005
  Receipt Date: 20070926
  Transmission Date: 20080405
  Serious: Yes (Other)
  Sender: FDA-Public Use
  Company Number: US-JNJFOC-20070902989

PATIENT
  Sex: Male
  Weight: 77.11 kg

DRUGS (6)
  1. REMICADE [Suspect]
     Route: 042
  2. REMICADE [Suspect]
     Indication: CROHN'S DISEASE
     Route: 042
  3. ASACOL [Concomitant]
     Indication: CROHN'S DISEASE
  4. AMARYL [Concomitant]
  5. PROTONIX [Concomitant]
  6. PREDNISONE [Concomitant]

REACTIONS (4)
  - ARTHRALGIA [None]
  - BACK PAIN [None]
  - HEMIPLEGIA [None]
  - INFUSION RELATED REACTION [None]
